FAERS Safety Report 6452688-1 (Version None)
Quarter: 2009Q4

REPORT INFORMATION
  Report Type: 
  Country: None (occurrence: None)
  Receive Date: 20091116
  Receipt Date: 20091105
  Transmission Date: 20100525
  Serious: Yes (Life-Threatening)
  Sender: FDA-Public Use
  Company Number: ADR50362009

PATIENT
  Age: 78 Year
  Sex: Female

DRUGS (5)
  1. CIPROFLOXACIN [Suspect]
  2. NITROFURANTOIN [Concomitant]
  3. ADCAL-D3 [Concomitant]
  4. FUROSEMIDE [Concomitant]
  5. OMEPRAZOLE [Concomitant]

REACTIONS (2)
  - PLATELET COUNT DECREASED [None]
  - RASH [None]
